FAERS Safety Report 4527602-6 (Version None)
Quarter: 2004Q4

REPORT INFORMATION
  Report Type: 
  Country: None (occurrence: None)
  Receive Date: 20041215
  Receipt Date: 20041203
  Transmission Date: 20050328
  Serious: Yes (Hospitalization)
  Sender: FDA-Public Use
  Company Number: PHHO2004FR17253

PATIENT
  Age: 54 Year
  Sex: Male

DRUGS (1)
  1. GLEEVEC [Suspect]
     Indication: CHRONIC MYELOID LEUKAEMIA
     Dosage: 400 MG, QD
     Route: 048
     Dates: start: 20031112, end: 20041126

REACTIONS (7)
  - CHILLS [None]
  - CHRONIC OBSTRUCTIVE AIRWAYS DISEASE [None]
  - CONDITION AGGRAVATED [None]
  - HYPOXIA [None]
  - PULMONARY HYPERTENSION [None]
  - PYREXIA [None]
  - RIGHT VENTRICULAR FAILURE [None]
